FAERS Safety Report 9807700 (Version 3)
Quarter: 2014Q1

REPORT INFORMATION
  Report Type: Spontaneous
  Country: US (occurrence: US)
  Receive Date: 20140110
  Receipt Date: 20140317
  Transmission Date: 20141002
  Serious: No
  Sender: FDA-Public Use
  Company Number: US-009507513-1401USA002781

PATIENT
  Sex: Female

DRUGS (3)
  1. OXYTROL FOR WOMEN [Suspect]
     Indication: HYPERTONIC BLADDER
     Dosage: 1 DF, Q4D
     Route: 062
     Dates: start: 201307
  2. ASPIRIN [Concomitant]
     Indication: PRODUCT USED FOR UNKNOWN INDICATION
     Dosage: UNK, UNKNOWN
  3. OCUVITE [Concomitant]
     Indication: EYE DISORDER
     Dosage: UNK, UNKNOWN

REACTIONS (4)
  - Skin irritation [Unknown]
  - Application site discolouration [Not Recovered/Not Resolved]
  - Pruritus [Unknown]
  - Product quality issue [Unknown]
